FAERS Safety Report 7860075-4 (Version None)
Quarter: 2011Q4

REPORT INFORMATION
  Report Type: 
  Country: None (occurrence: None)
  Receive Date: 20111025
  Receipt Date: 20111011
  Transmission Date: 20120403
  Serious: Yes (Other)
  Sender: FDA-Public Use
  Company Number: TPA2011A06671

PATIENT
  Age: 76 Year
  Sex: Male

DRUGS (2)
  1. GLYBURIDE [Concomitant]
  2. ACTOS [Suspect]
     Indication: DIABETES MELLITUS
     Dates: start: 20070101, end: 20110101

REACTIONS (1)
  - BLADDER CANCER RECURRENT [None]
